FAERS Safety Report 15660698 (Version 1)
Quarter: 2018Q4

REPORT INFORMATION
  Report Type: Report from Study
  Country: GB (occurrence: GB)
  Receive Date: 20181127
  Receipt Date: 20181127
  Transmission Date: 20190205
  Serious: Yes (Death, Hospitalization, Other)
  Sender: FDA-Public Use
  Company Number: GB-PFIZER INC-2018487700

PATIENT
  Age: 51 Year
  Sex: Male
  Weight: 89.9 kg

DRUGS (1)
  1. PF-06463922 [Suspect]
     Active Substance: LORLATINIB
     Indication: NON-SMALL CELL LUNG CANCER
     Dosage: 100 MG, 1X/DAY
     Route: 048
     Dates: start: 20170926, end: 20171105

REACTIONS (5)
  - Pneumonitis [Unknown]
  - Hypoxia [Fatal]
  - Lung infection [Unknown]
  - Neoplasm progression [Fatal]
  - Pulmonary embolism [Unknown]

NARRATIVE: CASE EVENT DATE: 201811
